FAERS Safety Report 22819348 (Version 4)
Quarter: 2025Q3

REPORT INFORMATION
  Report Type: Report from Study
  Country: EU (occurrence: EU)
  Receive Date: 20230814
  Receipt Date: 20250829
  Transmission Date: 20251021
  Serious: Yes (Hospitalization, Other)
  Sender: AUROBINDO
  Company Number: EU-PFIZER INC-202200010870

PATIENT
  Age: 23 Year
  Sex: Male

DRUGS (7)
  1. PREGABALIN [Suspect]
     Active Substance: PREGABALIN
     Indication: Generalised anxiety disorder
     Dosage: 2400 MILLIGRAM, ONCE A DAY (2400 MG, DAILY )
     Route: 048
  2. PREGABALIN [Suspect]
     Active Substance: PREGABALIN
     Indication: Partial seizures
     Route: 048
  3. PREGABALIN [Suspect]
     Active Substance: PREGABALIN
     Indication: Neuralgia
  4. LYRICA [Suspect]
     Active Substance: PREGABALIN
     Indication: Neuralgia
     Route: 048
  5. LYRICA [Suspect]
     Active Substance: PREGABALIN
     Indication: Generalised anxiety disorder
  6. LYRICA [Suspect]
     Active Substance: PREGABALIN
     Indication: Partial seizures
  7. DIAZEPAM [Concomitant]
     Active Substance: DIAZEPAM
     Indication: Product used for unknown indication
     Route: 065

REACTIONS (13)
  - Drug withdrawal syndrome [Unknown]
  - Overdose [Unknown]
  - Drug abuse [Unknown]
  - Intentional overdose [Unknown]
  - Nasal congestion [Unknown]
  - Chills [Unknown]
  - Drug dependence [Unknown]
  - Feeling hot [Unknown]
  - Hyperhidrosis [Unknown]
  - Nightmare [Unknown]
  - Seizure [Unknown]
  - Drug use disorder [Unknown]
  - Anxiety [Unknown]

NARRATIVE: CASE EVENT DATE: 20200101
